FAERS Safety Report 7979069-3 (Version None)
Quarter: 2011Q4

REPORT INFORMATION
  Report Type: 
  Country: None (occurrence: None)
  Receive Date: 20111214
  Receipt Date: 20111208
  Transmission Date: 20120403
  Serious: No
  Sender: FDA-Public Use
  Company Number: US-PFIZER INC-2011300702

PATIENT
  Sex: Female
  Weight: 53.515 kg

DRUGS (10)
  1. MAGNESIUM CITRATE SOLUTION [Concomitant]
     Dosage: UNK
  2. MELATONIN [Concomitant]
     Dosage: 3 MG, UNK
  3. ALPRAZOLAM [Concomitant]
     Dosage: 1 MG, UNK
  4. SUTENT [Suspect]
     Dosage: 50 MG, 1X/DAY FOR 4WEEKS, THEN REST 2 WEEKS, THEN REPEAT
     Route: 048
  5. CELEXA [Concomitant]
     Dosage: 20 MG, UNK
  6. HYDROMORPHONE [Concomitant]
     Dosage: 2 MG, UNK
  7. OMEPRAZOLE [Concomitant]
     Dosage: 20 MG, UNK
  8. FENTANYL DIHYDROGENCITRATE [Concomitant]
     Dosage: 12 UG, PER HOUR
  9. LEVOTHYROXINE [Concomitant]
     Dosage: 150 UG, UNK
  10. PSYLLIUM [Concomitant]
     Dosage: UNK

REACTIONS (5)
  - HEPATIC PAIN [None]
  - DYSPEPSIA [None]
  - BACK PAIN [None]
  - CONSTIPATION [None]
  - ABDOMINAL PAIN UPPER [None]
